FAERS Safety Report 10072227 (Version 2)
Quarter: 2014Q2

REPORT INFORMATION
  Report Type: Report from Study
  Country: US (occurrence: US)
  Receive Date: 20140411
  Receipt Date: 20140612
  Transmission Date: 20141212
  Serious: Yes (Other)
  Sender: FDA-Public Use
  Company Number: PHEH2014US007033

PATIENT
  Sex: Female

DRUGS (4)
  1. GLEEVEC [Suspect]
     Dosage: 400 MG, QD
     Route: 048
  2. GLEEVEC [Suspect]
     Dosage: UNK UKN, UNK
     Route: 048
     Dates: end: 200902
  3. GLEEVEC [Suspect]
     Dosage: UNK UKN, UNK
     Route: 048
  4. GLEEVEC [Suspect]
     Dosage: 400MG ALTERNATING WITH 200MG
     Route: 048
     Dates: start: 20140429

REACTIONS (10)
  - Lung neoplasm malignant [Unknown]
  - Malaise [Unknown]
  - Cough [Unknown]
  - Swelling [Unknown]
  - Bone pain [Unknown]
  - Palpitations [Unknown]
  - Myalgia [Unknown]
  - Asthenia [Unknown]
  - Fluid retention [Unknown]
  - Rash [Unknown]
